FAERS Safety Report 20661839 (Version 1)
Quarter: 2022Q2

REPORT INFORMATION
  Report Type: Spontaneous
  Country: DE (occurrence: DE)
  Receive Date: 20220401
  Receipt Date: 20220401
  Transmission Date: 20220720
  Serious: Yes (Other)
  Sender: FDA-Public Use
  Company Number: DE-DCGMA-21192337

PATIENT
  Age: 64 Year
  Sex: Female

DRUGS (2)
  1. CEFUROXIME [Suspect]
     Active Substance: CEFUROXIME
     Indication: Product used for unknown indication
     Dosage: 1000 DOSAGE FORM, ONCE A DAY
     Route: 065
  2. AMOXICILLIN\FLUCLOXACILLIN [Suspect]
     Active Substance: AMOXICILLIN\FLUCLOXACILLIN
     Indication: Product used for unknown indication
     Dosage: 1500 DOSAGE FORM, ONCE A DAY
     Route: 065

REACTIONS (2)
  - Electrocardiogram QT prolonged [Unknown]
  - Electrocardiogram T wave inversion [Unknown]
